FAERS Safety Report 7278277-7 (Version None)
Quarter: 2011Q1

REPORT INFORMATION
  Report Type: 
  Country: None (occurrence: None)
  Receive Date: 20110207
  Receipt Date: 20110204
  Transmission Date: 20110831
  Serious: Yes (Death, Other)
  Sender: FDA-Public Use
  Company Number: US-ASTRAZENECA-2011SE06354

PATIENT
  Age: 677 Month
  Sex: Female

DRUGS (1)
  1. SEROQUEL [Suspect]
     Route: 048

REACTIONS (5)
  - ASPIRATION [None]
  - ASPHYXIA [None]
  - PANCREATITIS CHRONIC [None]
  - DIABETES MELLITUS [None]
  - EMPHYSEMA [None]
